FAERS Safety Report 17877888 (Version 2)
Quarter: 2020Q3

REPORT INFORMATION
  Report Type: Spontaneous
  Country: US (occurrence: US)
  Receive Date: 20200610
  Receipt Date: 20200707
  Transmission Date: 20201103
  Serious: Yes (Other)
  Sender: FDA-Public Use
  Company Number: US-BEH-2020118272

PATIENT
  Sex: Male

DRUGS (10)
  1. HUMATE?P [Suspect]
     Active Substance: HUMAN COAGULATION FACTOR VIII/VON WILLEBRAND FACTOR COMPLEX
     Dosage: 2250 TO 2750 THREE TIMES PER WEEK, SLOW IV PUSH
     Route: 042
     Dates: start: 20131231
  2. HUMATE?P [Suspect]
     Active Substance: HUMAN COAGULATION FACTOR VIII/VON WILLEBRAND FACTOR COMPLEX
     Dosage: 2250 TO 2750 THREE TIMES PER WEEK, SLOW IV PUSH
     Route: 042
     Dates: start: 20131231
  3. HUMATE?P [Suspect]
     Active Substance: HUMAN COAGULATION FACTOR VIII/VON WILLEBRAND FACTOR COMPLEX
     Dosage: 4000 INTERNATIONAL UNIT, PRN
     Route: 042
  4. HUMATE?P [Suspect]
     Active Substance: HUMAN COAGULATION FACTOR VIII/VON WILLEBRAND FACTOR COMPLEX
     Indication: PROPHYLAXIS
     Dosage: 2500 INTERNATIONAL UNIT, PRN
     Route: 042
     Dates: start: 201312
  5. HUMATE?P [Suspect]
     Active Substance: HUMAN COAGULATION FACTOR VIII/VON WILLEBRAND FACTOR COMPLEX
     Dosage: 2250 TO 2750 THREE TIMES PER WEEK, SLOW IV PUSH
     Route: 042
     Dates: start: 20131231
  6. HUMATE?P [Suspect]
     Active Substance: HUMAN COAGULATION FACTOR VIII/VON WILLEBRAND FACTOR COMPLEX
     Dosage: 2250 TO 2750 THREE TIMES PER WEEK, SLOW IV PUSH
     Route: 042
     Dates: start: 20131231
  7. HUMATE?P [Suspect]
     Active Substance: HUMAN COAGULATION FACTOR VIII/VON WILLEBRAND FACTOR COMPLEX
     Indication: FACTOR VIII DEFICIENCY
     Dosage: (MWF)2500 INTERNATIONAL UNIT, TIW (M?W?F)
     Route: 042
     Dates: start: 201312
  8. HUMATE?P [Suspect]
     Active Substance: HUMAN COAGULATION FACTOR VIII/VON WILLEBRAND FACTOR COMPLEX
     Indication: PROPHYLAXIS
     Dosage: 2500 INTERNATIONAL UNIT, PRN
     Route: 042
     Dates: start: 201312
  9. HUMATE?P [Suspect]
     Active Substance: HUMAN COAGULATION FACTOR VIII/VON WILLEBRAND FACTOR COMPLEX
     Dosage: 4000 INTERNATIONAL UNIT, PRN
     Route: 042
  10. HUMATE?P [Suspect]
     Active Substance: HUMAN COAGULATION FACTOR VIII/VON WILLEBRAND FACTOR COMPLEX
     Indication: FACTOR VIII DEFICIENCY
     Dosage: (MWF)2500 INTERNATIONAL UNIT, TIW (M?W?F)
     Route: 042
     Dates: start: 201312

REACTIONS (3)
  - Haematoma [Unknown]
  - Traumatic haemorrhage [Recovered/Resolved]
  - Accident at work [Recovered/Resolved]
